FAERS Safety Report 5235123-0 (Version None)
Quarter: 2007Q1

REPORT INFORMATION
  Report Type: 
  Country: None (occurrence: None)
  Receive Date: 20070207
  Receipt Date: 20070123
  Transmission Date: 20070707
  Serious: No
  Sender: FDA-Public Use
  Company Number: DSA_29286_2007

PATIENT
  Age: 58 Year
  Sex: Female

DRUGS (2)
  1. CARDIZEM CD [Suspect]
     Indication: HYPERTENSION
     Dosage: 240 MG Q DAY PO
     Route: 048
  2. LISINOPRIL [Concomitant]

REACTIONS (2)
  - BACK DISORDER [None]
  - RASH [None]
